FAERS Safety Report 6422160-3 (Version None)
Quarter: 2009Q4

REPORT INFORMATION
  Report Type: 
  Country: None (occurrence: None)
  Receive Date: 20091030
  Receipt Date: 20090217
  Transmission Date: 20100525
  Serious: Yes (Life-Threatening, Hospitalization, Other)
  Sender: FDA-Public Use
  Company Number: PHBS2009IN00838

PATIENT
  Age: 34 Year
  Sex: Female
  Weight: 85 kg

DRUGS (10)
  1. SYNTOCINON [Suspect]
     Dosage: 5 U, BOLUS
     Route: 042
  2. SYNTOCINON [Suspect]
     Dosage: 10 U, IN 200 ML NORMAL SALINE
  3. METHERGINE [Suspect]
     Route: 042
  4. METHYLDOPA [Concomitant]
     Indication: HYPERTENSION
     Dosage: 500 MG, TID
  5. LABETALOL [Concomitant]
     Indication: HYPERTENSION
     Dosage: 100 MG, BID
  6. INSULIN [Concomitant]
  7. LEVOTHYROXINE SODIUM [Concomitant]
     Dosage: 50 UG DAILY
  8. NORMAL SALINE [Concomitant]
     Dosage: 500 ML
  9. DEXTROSE [Concomitant]
  10. BUPIVACAINE HYDROCHLORIDE [Concomitant]
     Route: 037

REACTIONS (34)
  - ALANINE AMINOTRANSFERASE INCREASED [None]
  - ALLERGY TEST POSITIVE [None]
  - ANAPHYLACTIC REACTION [None]
  - ASPARTATE AMINOTRANSFERASE INCREASED [None]
  - BLOOD CREATININE INCREASED [None]
  - BLOOD IMMUNOGLOBULIN E INCREASED [None]
  - BLOOD PRESSURE DECREASED [None]
  - BLOOD URINE PRESENT [None]
  - BRAIN OEDEMA [None]
  - CARDIAC DISORDER [None]
  - CARDIAC MASSAGE [None]
  - CENTRAL VENOUS CATHETERISATION [None]
  - CENTRAL VENOUS PRESSURE DECREASED [None]
  - CONJUNCTIVAL HYPERAEMIA [None]
  - EJECTION FRACTION ABNORMAL [None]
  - ELECTROMECHANICAL DISSOCIATION [None]
  - END-TIDAL CO2 DECREASED [None]
  - ENDOTRACHEAL INTUBATION [None]
  - FLUSHING [None]
  - FOAMING AT MOUTH [None]
  - GENERALISED OEDEMA [None]
  - HEPATIC ENZYME ABNORMAL [None]
  - LOW CARDIAC OUTPUT SYNDROME [None]
  - MYDRIASIS [None]
  - OXYGEN SUPPLEMENTATION [None]
  - PLEURAL EFFUSION [None]
  - PRURITUS [None]
  - PULSE ABSENT [None]
  - RENAL FUNCTION TEST ABNORMAL [None]
  - RESUSCITATION [None]
  - SALIVARY HYPERSECRETION [None]
  - SINUS TACHYCARDIA [None]
  - SNEEZING [None]
  - SWELLING FACE [None]
